FAERS Safety Report 23073490 (Version 1)
Quarter: 2023Q4

REPORT INFORMATION
  Report Type: Report from Study
  Country: US (occurrence: US)
  Receive Date: 20231017
  Receipt Date: 20231017
  Transmission Date: 20240109
  Serious: No
  Sender: FDA-Public Use
  Company Number: US-002147023-NVSC2023US219123

PATIENT
  Sex: Female

DRUGS (1)
  1. COSENTYX [Suspect]
     Active Substance: SECUKINUMAB
     Indication: Psoriasis
     Dosage: 300 MG, QMO
     Route: 058
     Dates: start: 20230316

REACTIONS (9)
  - Psoriasis [Unknown]
  - Skin exfoliation [Unknown]
  - Macule [Unknown]
  - Papule [Unknown]
  - Melanocytic naevus [Unknown]
  - Photodermatosis [Unknown]
  - Solar lentigo [Unknown]
  - Lentigo [Unknown]
  - Treatment failure [Unknown]
